FAERS Safety Report 5699699-1 (Version None)
Quarter: 2008Q2

REPORT INFORMATION
  Report Type: 
  Country: None (occurrence: None)
  Receive Date: 20080410
  Receipt Date: 20080401
  Transmission Date: 20081010
  Serious: Yes (Other)
  Sender: FDA-Public Use
  Company Number: PHNU2005DE04082

PATIENT
  Sex: Male
  Weight: 83 kg

DRUGS (6)
  1. LAMISIL [Suspect]
     Indication: ONYCHOMYCOSIS
     Dosage: 250 MG, QD
     Route: 048
     Dates: start: 20050701, end: 20050901
  2. LAMISIL [Suspect]
     Dosage: UNK, UNK
     Route: 048
     Dates: start: 20051201
  3. LAMISIL [Suspect]
     Dosage: UNK, UNK
  4. BETAFERON [Concomitant]
     Indication: MULTIPLE SCLEROSIS
  5. CORTISONE [Concomitant]
     Indication: MULTIPLE SCLEROSIS
  6. MITOXANTRONE [Concomitant]

REACTIONS (6)
  - BLOOD ALKALINE PHOSPHATASE INCREASED [None]
  - CANDIDA SEROLOGY POSITIVE [None]
  - DERMATOPHYTOSIS [None]
  - FUNGUS SEROLOGY TEST POSITIVE [None]
  - SYSTEMIC MYCOSIS [None]
  - THERAPEUTIC RESPONSE UNEXPECTED [None]
